FAERS Safety Report 4391994-1 (Version None)
Quarter: 2004Q3

REPORT INFORMATION
  Report Type: 
  Country: None (occurrence: None)
  Receive Date: 20040701
  Receipt Date: 20040616
  Transmission Date: 20050211
  Serious: Yes (Other)
  Sender: FDA-Public Use
  Company Number: USA040670370

PATIENT
  Age: 70 Year
  Sex: Female

DRUGS (5)
  1. FORTEO [Suspect]
     Indication: OSTEOPOROSIS
     Dates: start: 20040501, end: 20040501
  2. (LEVOTHYROXINE SODIUIM) [Concomitant]
  3. NEXIUM [Concomitant]
  4. THEOPHYLLINE [Concomitant]
  5. COMBIVENT [Concomitant]

REACTIONS (6)
  - ARTHROPATHY [None]
  - BONE EROSION [None]
  - LUNG NEOPLASM MALIGNANT [None]
  - METASTASES TO BONE [None]
  - PARAESTHESIA [None]
  - SPINAL DISORDER [None]
